FAERS Safety Report 20391632 (Version 5)
Quarter: 2022Q2

REPORT INFORMATION
  Report Type: Spontaneous
  Country: US (occurrence: US)
  Receive Date: 20220128
  Receipt Date: 20220525
  Transmission Date: 20220720
  Serious: No
  Sender: FDA-Public Use
  Company Number: US-PFIZER INC-202200120533

PATIENT
  Age: 90 Year
  Sex: Male
  Weight: 90.72 kg

DRUGS (1)
  1. PAXLOVID [Suspect]
     Active Substance: NIRMATRELVIR\RITONAVIR
     Indication: COVID-19
     Dosage: 2 TABS NIRMATRELVIR AND 1 TAB RITONAVIR
     Dates: start: 20220116, end: 20220120

REACTIONS (2)
  - Diarrhoea [Recovered/Resolved]
  - Fatigue [Not Recovered/Not Resolved]

NARRATIVE: CASE EVENT DATE: 20220101
